FAERS Safety Report 24669766 (Version 1)
Quarter: 2024Q4

REPORT INFORMATION
  Report Type: Spontaneous
  Country: US (occurrence: None)
  Receive Date: 20241127
  Receipt Date: 20241127
  Transmission Date: 20250114
  Serious: Yes (Other)
  Sender: Public
  Company Number: None

PATIENT
  Sex: Male

DRUGS (1)
  1. NORDITROPIN [Suspect]
     Active Substance: SOMATROPIN
     Indication: Short stature
     Dosage: OTHER FREQUENCY : 6 DAYS PER WEEK;?FREQ: INJECT 0.8 MG SUBCUTANEOUSLY 6 DAYS PER WEEK?
     Route: 058
     Dates: start: 20240125

REACTIONS (2)
  - Therapy interrupted [None]
  - Surgery [None]
